FAERS Safety Report 5187184-5 (Version None)
Quarter: 2006Q4

REPORT INFORMATION
  Report Type: 
  Country: None (occurrence: None)
  Receive Date: 20061214
  Receipt Date: 20061205
  Transmission Date: 20070319
  Serious: Yes (Hospitalization)
  Sender: FDA-Public Use
  Company Number: 2006150962

PATIENT
  Age: 70 Year
  Sex: Female
  Weight: 55 kg

DRUGS (2)
  1. AMLODIPINE [Suspect]
     Indication: HYPERTENSION
     Dosage: 2.5 MG (2.5 MG, DAILY), ORAL
     Route: 048
     Dates: start: 20060401, end: 20060424
  2. BLOPRESS                     (CANDESARTAN CILEXETIL) [Concomitant]

REACTIONS (1)
  - ATRIOVENTRICULAR BLOCK THIRD DEGREE [None]
